FAERS Safety Report 7733845-0 (Version None)
Quarter: 2011Q3

REPORT INFORMATION
  Report Type: 
  Country: None (occurrence: None)
  Receive Date: 20110907
  Receipt Date: 20110831
  Transmission Date: 20111222
  Serious: Yes (Disabling)
  Sender: FDA-Public Use
  Company Number: DK-ABBOTT-11P-044-0851717-00

PATIENT
  Sex: Male

DRUGS (5)
  1. HUMIRA [Suspect]
     Indication: ANKYLOSING SPONDYLITIS
     Dates: start: 20100909
  2. METHOTREXATE [Suspect]
     Indication: URTICARIA
     Dosage: PAUSE DUE TO EFFECT OF BONE MARROW
     Route: 048
     Dates: start: 20050301, end: 20051201
  3. METHOTREXATE [Suspect]
     Dates: start: 20060501, end: 20080101
  4. HUMIRA [Suspect]
     Dates: end: 20110601
  5. REMICADE [Suspect]
     Indication: ANKYLOSING SPONDYLITIS
     Dosage: AT START STANDARD DOSE, LATER 420MG EVERY SIXTH WEEK
     Dates: start: 20051125, end: 20100311

REACTIONS (2)
  - VARICES OESOPHAGEAL [None]
  - HEPATIC CIRRHOSIS [None]
